FAERS Safety Report 8463450-2 (Version None)
Quarter: 2012Q2

REPORT INFORMATION
  Report Type: 
  Country: None (occurrence: None)
  Receive Date: 20120625
  Receipt Date: 20120619
  Transmission Date: 20120825
  Serious: Yes (Life-Threatening, Other)
  Sender: FDA-Public Use
  Company Number: US-ASTRAZENECA-2012SE41200

PATIENT
  Age: 50 Year
  Sex: Male

DRUGS (2)
  1. QUETIAPINE [Suspect]
     Dosage: 8 TABLETS
     Route: 048
  2. ENOXAPARIN [Suspect]
     Dosage: 20 INJECTIONS
     Route: 058

REACTIONS (2)
  - SUICIDE ATTEMPT [None]
  - OVERDOSE [None]
